FAERS Safety Report 8258421-5 (Version None)
Quarter: 2012Q1

REPORT INFORMATION
  Report Type: 
  Country: None (occurrence: None)
  Receive Date: 20120322
  Receipt Date: 20111227
  Transmission Date: 20120608
  Serious: Yes (Hospitalization)
  Sender: FDA-Public Use
  Company Number: UTC-013973

PATIENT
  Age: 62 Year
  Sex: Female
  Weight: 75.45 kg

DRUGS (4)
  1. COUMADIN [Concomitant]
  2. LETAIRIS [Concomitant]
  3. TYVASO [Suspect]
     Indication: PULMONARY HYPERTENSION
     Dosage: 96 MCG (24 MCG, 4 IN 1 D),INHALATION
     Route: 055
     Dates: start: 20111017
  4. DIURETICS (DIURETICS) [Concomitant]

REACTIONS (1)
  - CARDIAC DISORDER [None]
